FAERS Safety Report 4359721-1 (Version None)
Quarter: 2004Q2

REPORT INFORMATION
  Report Type: 
  Country: None (occurrence: None)
  Receive Date: 20040512
  Receipt Date: 20040423
  Transmission Date: 20050107
  Serious: Yes (Hospitalization)
  Sender: FDA-Public Use
  Company Number: DE_040413456

PATIENT
  Age: 36 Year
  Sex: Male

DRUGS (3)
  1. CIALIS [Suspect]
     Indication: ERECTILE DYSFUNCTION
     Dosage: 10 MG AS NEEDED
     Dates: end: 20040409
  2. CIPROFLOXACIN [Concomitant]
  3. METRONIDAZOLE [Concomitant]

REACTIONS (6)
  - ACUTE CORONARY SYNDROME [None]
  - DIASTOLIC DYSFUNCTION [None]
  - DIVERTICULITIS [None]
  - SYNCOPE [None]
  - TROPONIN INCREASED [None]
  - VIRUS SEROLOGY TEST POSITIVE [None]
